FAERS Safety Report 8886393 (Version 1)
Quarter: 2012Q4

REPORT INFORMATION
  Report Type: 
  Country: CA (occurrence: CA)
  Receive Date: 20121105
  Receipt Date: 20121105
  Transmission Date: 20130627
  Serious: Yes (Hospitalization)
  Sender: FDA-Public Use
  Company Number: CA-GLAXOSMITHKLINE-A0999462A

PATIENT
  Sex: Female

DRUGS (5)
  1. VOTRIENT [Suspect]
     Indication: SARCOMA
     Dosage: 800MG Per day
     Route: 048
     Dates: start: 20121003
  2. CLONAZEPAM [Concomitant]
  3. ELTROXIN [Concomitant]
  4. METOPROLOL [Concomitant]
  5. ASPIRIN [Concomitant]

REACTIONS (1)
  - Malignant neoplasm progression [Not Recovered/Not Resolved]
